FAERS Safety Report 18797673 (Version 1)
Quarter: 2021Q1

REPORT INFORMATION
  Report Type: Report from Study
  Country: FR (occurrence: FR)
  Receive Date: 20210128
  Receipt Date: 20210128
  Transmission Date: 20210419
  Serious: Yes (Death, Other)
  Sender: FDA-Public Use
  Company Number: FR-AUROBINDO-AUR-APL-2021-003385

PATIENT

DRUGS (2)
  1. MELPHALAN INJECTION [Suspect]
     Active Substance: MELPHALAN
     Indication: METASTASES TO LIVER
     Dosage: 1.0 MILLIGRAM/KILOGRAM
     Route: 042
  2. MELPHALAN INJECTION [Suspect]
     Active Substance: MELPHALAN
     Indication: UVEAL MELANOMA

REACTIONS (1)
  - Septic shock [Fatal]
